FAERS Safety Report 5257821-5 (Version None)
Quarter: 2007Q1

REPORT INFORMATION
  Report Type: 
  Country: None (occurrence: None)
  Receive Date: 20070307
  Receipt Date: 20070223
  Transmission Date: 20070707
  Serious: Yes (Other)
  Sender: FDA-Public Use
  Company Number: AR-PFIZER INC-2007007970

PATIENT
  Sex: Female

DRUGS (6)
  1. LYRICA [Suspect]
     Indication: EPILEPSY
  2. PHENOBARBITAL TAB [Concomitant]
  3. RIVOTRIL [Concomitant]
     Dosage: DAILY DOSE:1MG
     Route: 048
  4. ACIFOL [Concomitant]
     Dosage: DAILY DOSE:5MG
     Route: 048
  5. VITAMIN K [Concomitant]
  6. LEVOTHYROXINE SODIUM [Concomitant]
     Dosage: DAILY DOSE:175MCG
     Dates: start: 19920101

REACTIONS (4)
  - CONVULSION [None]
  - PARTIAL SEIZURES [None]
  - SOMNOLENCE [None]
  - VAGINAL DISCHARGE [None]
